FAERS Safety Report 21259223 (Version 1)
Quarter: 2022Q3

REPORT INFORMATION
  Report Type: Spontaneous
  Country: TN (occurrence: TN)
  Receive Date: 20220826
  Receipt Date: 20220826
  Transmission Date: 20221026
  Serious: Yes (Hospitalization, Other)
  Sender: FDA-Public Use
  Company Number: None

PATIENT
  Age: 39 Year
  Sex: Male

DRUGS (2)
  1. DOXYCYCLINE HYCLATE [Suspect]
     Active Substance: DOXYCYCLINE HYCLATE
     Indication: Plasmodium falciparum infection
     Route: 065
  2. QUININE SULFATE [Suspect]
     Active Substance: QUININE SULFATE
     Indication: Plasmodium falciparum infection
     Route: 048

REACTIONS (8)
  - Hallucination, auditory [Unknown]
  - Hallucination, visual [Unknown]
  - Toxicity to various agents [Recovering/Resolving]
  - Drug interaction [Unknown]
  - Electrocardiogram QT prolonged [Unknown]
  - Nightmare [Unknown]
  - Dizziness [Recovering/Resolving]
  - Tinnitus [Recovering/Resolving]
